FAERS Safety Report 25085254 (Version 2)
Quarter: 2025Q2

REPORT INFORMATION
  Report Type: Spontaneous
  Country: JP (occurrence: JP)
  Receive Date: 20250317
  Receipt Date: 20250411
  Transmission Date: 20250717
  Serious: Yes (Other)
  Sender: ALEXION PHARMACEUTICALS
  Company Number: JP-ASTRAZENECA-250023797_064320_P_1

PATIENT
  Age: 75 Year

DRUGS (4)
  1. ANDEXXA [Suspect]
     Active Substance: ANDEXANET ALFA
  2. AMLODIPINE [Concomitant]
     Active Substance: AMLODIPINE BESYLATE
  3. APIXABAN [Concomitant]
     Active Substance: APIXABAN
  4. EDOXABAN [Concomitant]
     Active Substance: EDOXABAN
     Route: 065

REACTIONS (5)
  - Depressed level of consciousness [Unknown]
  - Monoplegia [Unknown]
  - Sensory disturbance [Unknown]
  - Facial paralysis [Unknown]
  - Hemiplegia [Unknown]
